FAERS Safety Report 9398483 (Version 1)
Quarter: 2013Q3

REPORT INFORMATION
  Report Type: Spontaneous
  Country: US (occurrence: US)
  Receive Date: 20130712
  Receipt Date: 20130712
  Transmission Date: 20140515
  Serious: Yes (Death, Other)
  Sender: FDA-Public Use
  Company Number: US-PFIZER INC-2013203762

PATIENT
  Age: 56 Year
  Sex: Female

DRUGS (6)
  1. ZOLPIDEM TARTRATE [Suspect]
     Dosage: UNK
     Route: 048
  2. HYDROXYZINE PAMOATE [Suspect]
     Dosage: 58 (50 MG) TABLETS WERE TAKEN OVER 11 DAYS SINCE THE LAST PRESCRIPTION WAS DISPENSED.
     Route: 048
  3. CITALOPRAM [Concomitant]
     Dosage: UNK
  4. NAPROXEN [Concomitant]
     Dosage: UNK
  5. LORAZEPAM [Concomitant]
     Dosage: UNK
  6. DICYCLOMINE [Concomitant]
     Dosage: UNK

REACTIONS (2)
  - Toxicity to various agents [Fatal]
  - Completed suicide [Fatal]
